FAERS Safety Report 4741045-1 (Version None)
Quarter: 2005Q3

REPORT INFORMATION
  Report Type: 
  Country: None (occurrence: None)
  Receive Date: 20050810
  Receipt Date: 20050608
  Transmission Date: 20060218
  Serious: No
  Sender: FDA-Public Use
  Company Number: US-GLAXOSMITHKLINE-A0561805A

PATIENT
  Age: 27 Year
  Sex: Male

DRUGS (4)
  1. PAXIL [Suspect]
     Dosage: 40MG PER DAY
     Route: 048
     Dates: start: 20050301
  2. TEGRETOL [Concomitant]
  3. SEROQUEL [Concomitant]
  4. VALIUM [Concomitant]

REACTIONS (1)
  - DEPRESSION [None]
